FAERS Safety Report 24436980 (Version 1)
Quarter: 2024Q4

REPORT INFORMATION
  Report Type: Spontaneous
  Country: US (occurrence: None)
  Receive Date: 20241011
  Receipt Date: 20241011
  Transmission Date: 20250114
  Serious: Yes (Hospitalization)
  Sender: Public
  Company Number: None

PATIENT
  Sex: Male

DRUGS (4)
  1. BENEFIX [Suspect]
     Active Substance: COAGULATION FACTOR IX RECOMBINANT HUMAN\ISOPROPYL ALCOHOL
     Indication: Factor IX deficiency
     Dosage: FREQUENCY : AS NEEDED;?
     Route: 042
     Dates: start: 202312
  2. BENEFIX [Suspect]
     Active Substance: COAGULATION FACTOR IX RECOMBINANT HUMAN\ISOPROPYL ALCOHOL
     Indication: Factor IX deficiency
     Dosage: FREQUENCY : AS NEEDED;?
     Route: 042
     Dates: start: 202312
  3. VYNDAMAX [Concomitant]
     Active Substance: TAFAMIDIS
  4. ALPROLIX INJ [Concomitant]

REACTIONS (2)
  - Haemarthrosis [None]
  - Cardiac disorder [None]
